FAERS Safety Report 9916339 (Version 1)
Quarter: 2014Q1

REPORT INFORMATION
  Report Type: Spontaneous
  Country: US (occurrence: None)
  Receive Date: 20140220
  Receipt Date: 20140220
  Transmission Date: 20141002
  Serious: Yes (Life-Threatening, Hospitalization)
  Sender: FDA-Public Use
  Company Number: None

PATIENT
  Age: 69 Year
  Sex: Female
  Weight: 79.7 kg

DRUGS (10)
  1. RIVAROXABAN [Suspect]
     Indication: DEEP VEIN THROMBOSIS
     Route: 048
     Dates: start: 20140128, end: 20140217
  2. METOPROLOL TARTRATE [Concomitant]
  3. LASIX [Concomitant]
  4. GLIPIZIDE [Concomitant]
  5. CLARITIN [Concomitant]
  6. TRICOR [Concomitant]
  7. ASA [Concomitant]
  8. CRESTOR [Concomitant]
  9. COZAAR [Concomitant]
  10. IMDUR [Concomitant]

REACTIONS (7)
  - Hypoxia [None]
  - Hypotension [None]
  - Melaena [None]
  - Nausea [None]
  - Asthenia [None]
  - Dizziness [None]
  - Renal injury [None]
